FAERS Safety Report 6588960-4 (Version None)
Quarter: 2010Q1

REPORT INFORMATION
  Report Type: 
  Country: None (occurrence: None)
  Receive Date: 20100218
  Receipt Date: 20100208
  Transmission Date: 20100710
  Serious: Yes (Other)
  Sender: FDA-Public Use
  Company Number: US-PFIZER INC-2010017800

PATIENT
  Sex: Male

DRUGS (12)
  1. LIPITOR [Suspect]
     Indication: BLOOD CHOLESTEROL INCREASED
     Dosage: 40 MG, 1X/DAY
     Dates: end: 20100106
  2. NEURONTIN [Suspect]
     Indication: INITIAL INSOMNIA
     Dosage: UNK
     Dates: start: 20060101
  3. GABAPENTIN [Suspect]
     Indication: INITIAL INSOMNIA
     Dosage: 1200 MG AT NIGHT
     Dates: start: 20100106, end: 20100101
  4. NADOLOL [Concomitant]
     Dosage: 40 MG, 1X/DAY
  5. ALLOPURINOL [Concomitant]
     Dosage: 300 MG, 1X/DAY
  6. ISOSORBIDE MONONITRATE [Concomitant]
     Dosage: 60 MG, 2X/DAY
  7. COLCHICINE [Concomitant]
     Dosage: 0.6 MG, 2X/DAY
  8. ATACAND [Concomitant]
     Dosage: 16 MG, 1X/DAY
  9. ASPIRIN [Concomitant]
     Dosage: 81 MG, 1X/DAY
  10. LOVAZA [Concomitant]
     Dosage: FREQUENCY: 2X/DAY
     Dates: start: 20090101
  11. MULTI-VITAMINS [Concomitant]
     Dosage: UNK
     Dates: end: 20100208
  12. AMBIEN [Concomitant]
     Indication: INITIAL INSOMNIA
     Dosage: UNK

REACTIONS (10)
  - DECREASED APPETITE [None]
  - DIZZINESS [None]
  - DRUG INEFFECTIVE FOR UNAPPROVED INDICATION [None]
  - FEELING ABNORMAL [None]
  - HEPATIC ENZYME INCREASED [None]
  - LIVER INJURY [None]
  - MALAISE [None]
  - SERUM FERRITIN INCREASED [None]
  - SLEEP APNOEA SYNDROME [None]
  - WEIGHT DECREASED [None]
